FAERS Safety Report 7756517-5 (Version None)
Quarter: 2011Q3

REPORT INFORMATION
  Report Type: 
  Country: None (occurrence: None)
  Receive Date: 20110916
  Receipt Date: 20110906
  Transmission Date: 20111222
  Serious: Yes (Hospitalization)
  Sender: FDA-Public Use
  Company Number: US-ELI_LILLY_AND_COMPANY-US201102002331

PATIENT
  Sex: Female

DRUGS (3)
  1. FORTEO [Suspect]
     Dosage: 20 UG, QD
     Dates: start: 20110818
  2. TOPROL-XL [Concomitant]
  3. FORTEO [Suspect]
     Indication: OSTEOPOROSIS
     Dosage: 20 UG, DAILY (1/D)
     Route: 058
     Dates: start: 20100618, end: 20110201

REACTIONS (6)
  - HEART RATE IRREGULAR [None]
  - FATIGUE [None]
  - INTENTIONAL DRUG MISUSE [None]
  - SOMNOLENCE [None]
  - HEART RATE INCREASED [None]
  - HEART RATE DECREASED [None]
